FAERS Safety Report 23236901 (Version 1)
Quarter: 2023Q4

REPORT INFORMATION
  Report Type: Spontaneous
  Country: JP (occurrence: JP)
  Receive Date: 20231128
  Receipt Date: 20231128
  Transmission Date: 20240110
  Serious: Yes (Hospitalization, Other)
  Sender: FDA-Public Use
  Company Number: None

PATIENT

DRUGS (1)
  1. BENLYSTA [Suspect]
     Active Substance: BELIMUMAB
     Dosage: UNK
     Dates: end: 202311

REACTIONS (2)
  - Intestinal perforation [Recovered/Resolved]
  - Lupus enteritis [Recovered/Resolved]

NARRATIVE: CASE EVENT DATE: 20231101
